FAERS Safety Report 10245356 (Version 1)
Quarter: 2014Q2

REPORT INFORMATION
  Report Type: Spontaneous
  Country: US (occurrence: US)
  Receive Date: 20140618
  Receipt Date: 20140618
  Transmission Date: 20141212
  Serious: Yes (Other)
  Sender: FDA-Public Use
  Company Number: US-BAXTER-2014BAX030345

PATIENT
  Age: 67 Year
  Sex: Female

DRUGS (2)
  1. SEVOFLURANE, USP [Suspect]
     Indication: MAINTENANCE OF ANAESTHESIA
     Route: 065
  2. PROPOFOL [Suspect]
     Indication: MAINTENANCE OF ANAESTHESIA
     Route: 065

REACTIONS (1)
  - Somatosensory evoked potentials abnormal [Unknown]
